FAERS Safety Report 4987906-X (Version None)
Quarter: 2006Q2

REPORT INFORMATION
  Report Type: 
  Country: None (occurrence: None)
  Receive Date: 20060426
  Receipt Date: 20060410
  Transmission Date: 20061013
  Serious: Yes (Death)
  Sender: FDA-Public Use
  Company Number: 2006RL000127

PATIENT
  Age: 5 Year
  Sex: Male

DRUGS (10)
  1. PROPRANOLOL HYDROCHLORIDE [Suspect]
     Indication: BLOOD PRESSURE
     Dosage: PO
     Route: 048
  2. PROPRANOLOL HYDROCHLORIDE [Suspect]
     Indication: PROPHYLAXIS
     Dosage: PO
     Route: 048
  3. NIFEDIPINE [Suspect]
     Indication: PROPHYLAXIS
     Dosage: PO
     Route: 048
  4. ASPIRIN [Concomitant]
  5. IMMUNE GLOBULIN INTRAVENOUS (HUMAN) [Concomitant]
  6. WARFARIN SODIUM [Concomitant]
  7. DIPYRIDAMOLE [Concomitant]
  8. HEPARIN [Concomitant]
  9. ULINASTATIN [Concomitant]
  10. ALBUMIN NOS [Concomitant]

REACTIONS (6)
  - ANEURYSM RUPTURED [None]
  - CARDIAC TAMPONADE [None]
  - COMA [None]
  - CORONARY ARTERY ANEURYSM [None]
  - LOSS OF CONSCIOUSNESS [None]
  - PERICARDIAL EFFUSION [None]
